FAERS Safety Report 7361978-X (Version None)
Quarter: 2011Q1

REPORT INFORMATION
  Report Type: 
  Country: None (occurrence: None)
  Receive Date: 20110318
  Receipt Date: 20110317
  Transmission Date: 20110831
  Serious: Yes (Other)
  Sender: FDA-Public Use
  Company Number: JP-PFIZER INC-2011033898

PATIENT
  Age: 66 Year
  Sex: Male

DRUGS (17)
  1. ABILIFY [Concomitant]
     Dosage: 24 MG, 1X/DAY
     Route: 048
     Dates: start: 20100428, end: 20110226
  2. CHAMPIX [Suspect]
     Dosage: 1 MG/DAY
     Route: 048
     Dates: start: 20100906, end: 20100909
  3. ZYPREXA [Concomitant]
     Dosage: 5 MG, 1X/DAY
     Route: 048
     Dates: start: 20110227
  4. ABILIFY [Concomitant]
     Dosage: 12 MG, 1X/DAY
     Route: 048
     Dates: start: 20110227
  5. METHYCOOL [Concomitant]
     Dosage: 500 UG, 1X/DAY
     Route: 048
     Dates: start: 20100428
  6. CHAMPIX [Suspect]
     Dosage: 2 MG/DAY
     Route: 048
     Dates: start: 20100910, end: 20110215
  7. SHINLUCK [Concomitant]
     Dosage: 3 DF, 1X/DAY
     Route: 048
     Dates: start: 20100428
  8. ZYPREXA [Concomitant]
     Indication: SCHIZOPHRENIA
     Dosage: 10 MG, 1X/DAY
     Route: 048
     Dates: start: 20100428, end: 20110226
  9. MAG-LAX [Concomitant]
     Dosage: 2 G, 3X/DAY
     Route: 048
     Dates: start: 20100428
  10. PURSENNID [Concomitant]
     Dosage: 4 DF, 1X/DAY
     Route: 048
     Dates: start: 20100428
  11. TASMOLIN [Concomitant]
     Indication: PARKINSON'S DISEASE
     Dosage: 3 MG, DAILY
     Dates: start: 20101009, end: 20110309
  12. TASMOLIN [Concomitant]
     Dosage: 6 MG, DAILY
     Dates: start: 20110310
  13. CHAMPIX [Suspect]
     Dosage: 1 MG/DAY
     Route: 048
     Dates: start: 20110216, end: 20110221
  14. STANZOME [Concomitant]
     Dosage: 15 MG, 1X/DAY
     Route: 048
     Dates: start: 20100428
  15. CHAMPIX [Suspect]
     Indication: SMOKING CESSATION THERAPY
     Dosage: 0.5 MG/DAY
     Route: 048
     Dates: start: 20100903, end: 20100905
  16. EURODIN [Concomitant]
     Dosage: 2 MG, 1X/DAY
     Route: 048
     Dates: start: 20100428
  17. TOUKAKUJOUKITOU [Concomitant]
     Dosage: 7.5 G, 3X/DAY
     Route: 048
     Dates: start: 20100428

REACTIONS (2)
  - HYPOTONIA [None]
  - GAIT DISTURBANCE [None]
